FAERS Safety Report 5455287-3 (Version None)
Quarter: 2007Q3

REPORT INFORMATION
  Report Type: 
  Country: None (occurrence: None)
  Receive Date: 20070918
  Receipt Date: 20070907
  Transmission Date: 20080115
  Serious: Yes (Death, Other)
  Sender: FDA-Public Use
  Company Number: GR-ALLERGAN-0710143US

PATIENT
  Age: 45 Year
  Sex: Male

DRUGS (1)
  1. OPHTHETIC [Suspect]
     Indication: EYE PAIN
     Dosage: UNK, Q1HR
     Route: 047

REACTIONS (2)
  - CHEMICAL EYE INJURY [None]
  - COMPLETED SUICIDE [None]
